FAERS Safety Report 4317027-0 (Version None)
Quarter: 2004Q1

REPORT INFORMATION
  Report Type: 
  Country: None (occurrence: None)
  Receive Date: 20040312
  Receipt Date: 20040305
  Transmission Date: 20041129
  Serious: Yes (Death)
  Sender: FDA-Public Use
  Company Number: US-JNJFOC-20040301432

PATIENT
  Age: 22 Year
  Sex: Female

DRUGS (5)
  1. DURAGESIC [Suspect]
     Indication: POSTOPERATIVE ANALGESIA
     Dosage: 150 UG, 1 IN 72 HOUR, TRANSDERMAL
     Route: 062
     Dates: start: 20040211, end: 20040215
  2. DIAZEPAM [Concomitant]
  3. OXYCODONE (OXYCODONE) [Concomitant]
  4. MORPHINE [Concomitant]
  5. GABAPENTIN (GABAPENTIN) [Concomitant]

REACTIONS (1)
  - DEATH [None]
